FAERS Safety Report 18373406 (Version 2)
Quarter: 2020Q4

REPORT INFORMATION
  Report Type: Spontaneous
  Country: US (occurrence: US)
  Receive Date: 20201012
  Receipt Date: 20201023
  Transmission Date: 20210114
  Serious: Yes (Other)
  Sender: FDA-Public Use
  Company Number: US-ALLERGAN-2038980US

PATIENT
  Sex: Male

DRUGS (2)
  1. BRIMONIDINE [Suspect]
     Active Substance: BRIMONIDINE TARTRATE
     Indication: PRODUCT USED FOR UNKNOWN INDICATION
     Route: 047
  2. TRAVOPROST. [Concomitant]
     Active Substance: TRAVOPROST
     Dosage: UNK, QHS
     Route: 047

REACTIONS (3)
  - Orthostatic hypotension [Unknown]
  - Conjunctivitis [Unknown]
  - Optic disc haemorrhage [Unknown]
